FAERS Safety Report 6925113-1 (Version None)
Quarter: 2010Q3

REPORT INFORMATION
  Report Type: 
  Country: None (occurrence: None)
  Receive Date: 20100816
  Receipt Date: 20100715
  Transmission Date: 20110219
  Serious: No
  Sender: FDA-Public Use
  Company Number: US-BAYER-201018391BCC

PATIENT
  Age: 48 Year
  Sex: Female
  Weight: 145 kg

DRUGS (5)
  1. ALEVE [Suspect]
     Indication: ARTHRALGIA
     Dosage: UNIT DOSE: 220 MG
     Route: 048
     Dates: start: 20100715
  2. NAPROXEN [Concomitant]
     Indication: ARTHRALGIA
     Dosage: UNIT DOSE: 1 DF
     Dates: start: 20100715
  3. ALLEGRA D 24 HOUR [Concomitant]
  4. ACIPHEX [Concomitant]
  5. MULTI-VITAMIN [Concomitant]

REACTIONS (1)
  - RETCHING [None]
